FAERS Safety Report 9511995 (Version 1)
Quarter: 2013Q3

REPORT INFORMATION
  Report Type: Spontaneous
  Country: NL (occurrence: None)
  Receive Date: 20130906
  Receipt Date: 20130906
  Transmission Date: 20140515
  Serious: Yes (Hospitalization)
  Sender: FDA-Public Use
  Company Number: 2013000221

PATIENT
  Age: 50 Year
  Sex: Female
  Weight: 75 kg

DRUGS (5)
  1. ACEON [Suspect]
     Indication: HYPERTENSION
     Route: 048
     Dates: start: 20130718, end: 20130808
  2. METOPROLOL [Concomitant]
  3. SIMVASTATIN [Concomitant]
  4. ACETYLSALICYLIC ACID [Concomitant]
  5. CYANOCOBALAMIN [Concomitant]

REACTIONS (8)
  - Shock [None]
  - Palpitations [None]
  - Tremor [None]
  - Sluggishness [None]
  - Hyperhidrosis [None]
  - Food craving [None]
  - Renal pain [None]
  - Polyuria [None]
